FAERS Safety Report 8818850 (Version 1)
Quarter: 2012Q4

REPORT INFORMATION
  Report Type: 
  Country: BR (occurrence: BR)
  Receive Date: 20121001
  Receipt Date: 20121001
  Transmission Date: 20130627
  Serious: Yes (Other)
  Sender: FDA-Public Use
  Company Number: BR-ASTRAZENECA-2012SE73627

PATIENT
  Sex: Male

DRUGS (4)
  1. SELOZOK [Suspect]
     Indication: MYOCARDIAL INFARCTION
     Route: 048
     Dates: start: 2008, end: 2009
  2. SELOZOK [Suspect]
     Indication: CARDIOVASCULAR EVENT PROPHYLAXIS
     Route: 048
     Dates: start: 2008, end: 2009
  3. SELOZOK [Suspect]
     Indication: MYOCARDIAL INFARCTION
     Route: 048
     Dates: start: 2009
  4. SELOZOK [Suspect]
     Indication: CARDIOVASCULAR EVENT PROPHYLAXIS
     Route: 048
     Dates: start: 2009

REACTIONS (1)
  - Coronary artery occlusion [Recovered/Resolved]
